FAERS Safety Report 9715421 (Version 3)
Quarter: 2013Q4

REPORT INFORMATION
  Report Type: Spontaneous
  Country: IL (occurrence: IL)
  Receive Date: 20131127
  Receipt Date: 20131217
  Transmission Date: 20140711
  Serious: Yes (Other)
  Sender: FDA-Public Use
  Company Number: IL-009507513-1311ISR010665

PATIENT
  Age: 70 Year
  Sex: Male

DRUGS (2)
  1. MK-0000 [Suspect]
     Dosage: UNK
     Route: 048
  2. EUCREAS [Suspect]
     Dosage: UNK
     Dates: start: 201308

REACTIONS (3)
  - Pancreatic carcinoma [Unknown]
  - Surgery [Unknown]
  - Weight decreased [Unknown]
